FAERS Safety Report 5983720-7 (Version None)
Quarter: 2008Q4

REPORT INFORMATION
  Report Type: 
  Country: None (occurrence: None)
  Receive Date: 20081205
  Receipt Date: 20081205
  Transmission Date: 20090506
  Serious: Yes (Hospitalization)
  Sender: FDA-Public Use
  Company Number: None

PATIENT
  Age: 50 Year
  Sex: Male

DRUGS (1)
  1. DASATINIB [Suspect]
     Indication: CHRONIC MYELOID LEUKAEMIA
     Dosage: 100 MG EVERY DAY PO
     Route: 048
     Dates: start: 20080417

REACTIONS (4)
  - COUGH [None]
  - DIARRHOEA [None]
  - PYREXIA [None]
  - WHEEZING [None]
